FAERS Safety Report 15689075 (Version 4)
Quarter: 2019Q1

REPORT INFORMATION
  Report Type: Report from Study
  Country: TR (occurrence: TR)
  Receive Date: 20181205
  Receipt Date: 20190215
  Transmission Date: 20190417
  Serious: Yes (Other)
  Sender: FDA-Public Use
  Company Number: TR-AMGEN-TURNI2018172006

PATIENT
  Age: 59 Year
  Sex: Male

DRUGS (1)
  1. ENBREL [Suspect]
     Active Substance: ETANERCEPT
     Indication: PSORIATIC ARTHROPATHY
     Dosage: UNK
     Route: 065
     Dates: end: 2018

REACTIONS (4)
  - Psoriatic arthropathy [Unknown]
  - Diabetes mellitus [Unknown]
  - Drug effect incomplete [Unknown]
  - Pneumonia [Unknown]

NARRATIVE: CASE EVENT DATE: 201803
